FAERS Safety Report 6720024-9 (Version None)
Quarter: 2010Q2

REPORT INFORMATION
  Report Type: 
  Country: None (occurrence: None)
  Receive Date: 20100511
  Receipt Date: 20100506
  Transmission Date: 20101027
  Serious: Yes (Death)
  Sender: FDA-Public Use
  Company Number: US-GILEAD-2010-0028740

PATIENT
  Sex: Female

DRUGS (13)
  1. LETAIRIS [Suspect]
     Indication: COR PULMONALE CHRONIC
     Route: 048
     Dates: start: 20100318, end: 20100423
  2. LETAIRIS [Suspect]
     Route: 048
     Dates: start: 20100218, end: 20100318
  3. ADCIRCA [Concomitant]
  4. TORSEMIDE [Concomitant]
  5. QUINAPRIL [Concomitant]
  6. CADUET [Concomitant]
  7. DIGOXIN [Concomitant]
  8. ASPIRIN [Concomitant]
  9. HYDROXYUREA [Concomitant]
  10. ENABLEX [Concomitant]
  11. LANTUS [Concomitant]
  12. NOVOLOG [Concomitant]
  13. CITALOPRAM [Concomitant]

REACTIONS (1)
  - RESPIRATORY FAILURE [None]
